FAERS Safety Report 23921395 (Version 1)
Quarter: 2024Q2

REPORT INFORMATION
  Report Type: Spontaneous
  Country: US (occurrence: None)
  Receive Date: 20240530
  Receipt Date: 20240530
  Transmission Date: 20240716
  Serious: Yes (Other)
  Sender: FDA-Public Use
  Company Number: 2024A120509

PATIENT
  Age: 20553 Day
  Sex: Female

DRUGS (1)
  1. TAGRISSO [Suspect]
     Active Substance: OSIMERTINIB
     Indication: Lung carcinoma cell type unspecified stage IV
     Route: 048
     Dates: start: 202302

REACTIONS (8)
  - Carcinoembryonic antigen increased [Unknown]
  - Sinusitis [Unknown]
  - Pharyngitis [Unknown]
  - Pustule [Unknown]
  - Stomatitis [Unknown]
  - Vision blurred [Unknown]
  - Alopecia [Unknown]
  - Headache [Unknown]

NARRATIVE: CASE EVENT DATE: 20231215
